FAERS Safety Report 19006888 (Version 1)
Quarter: 2021Q1

REPORT INFORMATION
  Report Type: Report from Study
  Country: JP (occurrence: JP)
  Receive Date: 20210315
  Receipt Date: 20210315
  Transmission Date: 20210420
  Serious: Yes (Death, Other)
  Sender: FDA-Public Use
  Company Number: JP-AUROBINDO-AUR-APL-2019-047550

PATIENT
  Age: 77 Year
  Sex: Male
  Weight: 79 kg

DRUGS (13)
  1. CALONAL [Concomitant]
     Active Substance: ACETAMINOPHEN
     Indication: PREMEDICATION
     Dosage: 400 MILLIGRAM
     Route: 048
     Dates: start: 20090617, end: 20090617
  2. MYCOSYST [Concomitant]
     Active Substance: FLUCONAZOLE
     Indication: INFECTION PROPHYLAXIS
     Dosage: 100 MILLIGRAM
     Route: 048
     Dates: start: 20090216, end: 20090710
  3. RITUXIMAB. [Concomitant]
     Active Substance: RITUXIMAB
     Dosage: 250 MG/M2, SINGLE
     Route: 041
     Dates: start: 20090624, end: 20090624
  4. ALLEGRA [Concomitant]
     Active Substance: FEXOFENADINE HYDROCHLORIDE
     Dosage: UNK
     Route: 048
     Dates: start: 20090623, end: 20090623
  5. CALONAL [Concomitant]
     Active Substance: ACETAMINOPHEN
     Dosage: UNK
     Route: 048
     Dates: start: 20090623, end: 20090623
  6. ALLEGRA [Concomitant]
     Active Substance: FEXOFENADINE HYDROCHLORIDE
     Indication: PREMEDICATION
     Dosage: 60 MILLIGRAM
     Route: 048
     Dates: start: 20090617, end: 20090617
  7. CALONAL [Concomitant]
     Active Substance: ACETAMINOPHEN
     Dosage: 400 MILLIGRAM
     Route: 048
     Dates: start: 20090624, end: 20090624
  8. ALLEGRA [Concomitant]
     Active Substance: FEXOFENADINE HYDROCHLORIDE
     Dosage: 60 MILLIGRAM
     Route: 048
     Dates: start: 20090624, end: 20090624
  9. TAKEPRON [Concomitant]
     Active Substance: LANSOPRAZOLE
     Indication: GASTRITIS PROPHYLAXIS
     Dosage: 15 MILLIGRAM
     Route: 048
     Dates: start: 20090216, end: 20090710
  10. RITUXIMAB. [Concomitant]
     Active Substance: RITUXIMAB
     Indication: MANTLE CELL LYMPHOMA STAGE III
     Dosage: 250 MILLIGRAM/SQ. METER
     Route: 041
     Dates: start: 20090617, end: 20090617
  11. ZEVALIN [Suspect]
     Active Substance: IBRITUMOMAB TIUXETAN
     Indication: MANTLE CELL LYMPHOMA STAGE III
     Dosage: 1169 MBQ/KG, SINGLE
     Route: 042
     Dates: start: 20090624, end: 20090624
  12. BAKTAR [Concomitant]
     Active Substance: SULFAMETHOXAZOLE\TRIMETHOPRIM
     Indication: INFECTION PROPHYLAXIS
     Dosage: UNK
     Route: 048
     Dates: start: 20090216
  13. ZEVALIN [Suspect]
     Active Substance: IBRITUMOMAB TIUXETAN
     Indication: MANTLE CELL LYMPHOMA STAGE III
     Dosage: 130 MEGABECQUEREL
     Route: 042
     Dates: start: 20090617, end: 20090617

REACTIONS (7)
  - Platelet count decreased [Recovered/Resolved]
  - Disease progression [Fatal]
  - White blood cell count decreased [Recovered/Resolved]
  - Anaemia [Recovered/Resolved]
  - Neutropenia [Recovered/Resolved]
  - Mantle cell lymphoma [Fatal]
  - Off label use [Unknown]

NARRATIVE: CASE EVENT DATE: 20090703
